FAERS Safety Report 5931372-4 (Version None)
Quarter: 2008Q4

REPORT INFORMATION
  Report Type: 
  Country: None (occurrence: None)
  Receive Date: 20081027
  Receipt Date: 20081015
  Transmission Date: 20090506
  Serious: Yes (Other)
  Sender: FDA-Public Use
  Company Number: GR-ROCHE-592182

PATIENT
  Age: 66 Year
  Sex: Male

DRUGS (1)
  1. MIRCERA [Suspect]
     Route: 065
     Dates: start: 20080501, end: 20080801

REACTIONS (2)
  - PLATELET COUNT DECREASED [None]
  - WHITE BLOOD CELL COUNT DECREASED [None]
